FAERS Safety Report 6471842-6 (Version None)
Quarter: 2009Q4

REPORT INFORMATION
  Report Type: 
  Country: None (occurrence: None)
  Receive Date: 20091203
  Receipt Date: 20080514
  Transmission Date: 20100525
  Serious: Yes (Other)
  Sender: FDA-Public Use
  Company Number: US-ELI_LILLY_AND_COMPANY-US200803004890

PATIENT
  Age: 45 Year
  Sex: Male

DRUGS (5)
  1. CYMBALTA [Suspect]
     Indication: NECK PAIN
     Dosage: 60 MG, UNK
     Dates: start: 20071102, end: 20080301
  2. NABUMETONE [Concomitant]
  3. UNIRETIC [Concomitant]
  4. BACLOFEN [Concomitant]
  5. NORCO [Concomitant]
     Dosage: 1 D/F, AS NEEDED

REACTIONS (1)
  - DYSTONIA [None]
